FAERS Safety Report 17108954 (Version 1)
Quarter: 2019Q4

REPORT INFORMATION
  Report Type: Spontaneous
  Country: CA (occurrence: CA)
  Receive Date: 20191203
  Receipt Date: 20191203
  Transmission Date: 20200122
  Serious: Yes (Life-Threatening, Hospitalization, Other)
  Sender: FDA-Public Use
  Company Number: CA-B.BRAUN MEDICAL INC.-2077442

PATIENT
  Age: 41 Year
  Sex: Female

DRUGS (8)
  1. GLUCOSE [Suspect]
     Active Substance: DEXTROSE
     Route: 065
  2. ZOPICLONE [Suspect]
     Active Substance: ZOPICLONE
     Route: 048
  3. NOVORAPID [Suspect]
     Active Substance: INSULIN ASPART
     Route: 058
  4. DEXTROSE INJECTIONS USP 0264-7510-00 0264-7510-20 [Suspect]
     Active Substance: DEXTROSE
     Indication: HYPOGLYCAEMIA
     Route: 042
  5. CLONAZEPAM. [Suspect]
     Active Substance: CLONAZEPAM
     Route: 048
  6. GLUCOSE [Suspect]
     Active Substance: DEXTROSE
     Route: 065
  7. GLUCOSE [Suspect]
     Active Substance: DEXTROSE
     Route: 065
  8. DEXTROSE. [Suspect]
     Active Substance: DEXTROSE
     Route: 042

REACTIONS (9)
  - Ataxia [None]
  - Intentional overdose [None]
  - Oedema peripheral [None]
  - Hyperhidrosis [None]
  - Blood pressure decreased [None]
  - Hypoglycaemia [None]
  - Lethargy [None]
  - Somnolence [None]
  - Blood potassium decreased [None]
